FAERS Safety Report 21919925 (Version 1)
Quarter: 2023Q1

REPORT INFORMATION
  Report Type: Spontaneous
  Country: JP (occurrence: JP)
  Receive Date: 20230127
  Receipt Date: 20230127
  Transmission Date: 20230417
  Serious: Yes (Other)
  Sender: FDA-Public Use
  Company Number: JP-PFIZER INC-PV202300014695

PATIENT
  Age: 73 Year
  Sex: Male

DRUGS (3)
  1. METRONIDAZOLE [Suspect]
     Active Substance: METRONIDAZOLE
     Indication: Liver abscess
     Dosage: 1500 MG, DAILY
  2. METRONIDAZOLE [Suspect]
     Active Substance: METRONIDAZOLE
     Indication: Hepatic amoebiasis
  3. MEROPENEM [Concomitant]
     Active Substance: MEROPENEM
     Indication: Liver abscess
     Dosage: 2 G, DAILY

REACTIONS (1)
  - Toxic encephalopathy [Recovered/Resolved]
